FAERS Safety Report 11443345 (Version 2)
Quarter: 2015Q4

REPORT INFORMATION
  Report Type: Spontaneous
  Country: US (occurrence: US)
  Receive Date: 20150901
  Receipt Date: 20151221
  Transmission Date: 20160304
  Serious: No
  Sender: FDA-Public Use
  Company Number: US-CELGENEUS-USA-2015074756

PATIENT
  Sex: Female

DRUGS (7)
  1. ACTEMRA [Concomitant]
     Active Substance: TOCILIZUMAB
     Indication: POLYMYALGIA RHEUMATICA
  2. BUPROPION. [Concomitant]
     Active Substance: BUPROPION
     Indication: DEPRESSION
     Route: 065
  3. ZOLOFT [Concomitant]
     Active Substance: SERTRALINE HYDROCHLORIDE
     Indication: DEPRESSION
     Route: 065
  4. METHOTREXATE [Concomitant]
     Active Substance: METHOTREXATE
     Indication: DEPRESSION
     Route: 058
  5. OTEZLA [Suspect]
     Active Substance: APREMILAST
     Indication: PSORIASIS
     Dosage: 60 MILLIGRAM
     Route: 048
     Dates: start: 20150519, end: 20150706
  6. CARVEDILOL. [Concomitant]
     Active Substance: CARVEDILOL
     Indication: HYPERTENSION
     Route: 065
  7. ACTEMRA [Concomitant]
     Active Substance: TOCILIZUMAB
     Indication: ARTHRITIS
     Route: 065

REACTIONS (4)
  - Dyspnoea [Recovered/Resolved]
  - Diarrhoea [Unknown]
  - Chest discomfort [Recovered/Resolved]
  - Cough [Recovered/Resolved]

NARRATIVE: CASE EVENT DATE: 2015
